FAERS Safety Report 13891780 (Version 2)
Quarter: 2017Q3

REPORT INFORMATION
  Report Type: Report from Study
  Country: US (occurrence: US)
  Receive Date: 20170822
  Receipt Date: 20170823
  Transmission Date: 20171127
  Serious: Yes (Other)
  Sender: FDA-Public Use
  Company Number: US-TAKEDA-2017MPI007103

PATIENT

DRUGS (2)
  1. IXAZOMIB [Suspect]
     Active Substance: IXAZOMIB
     Indication: NEOPLASM MALIGNANT
     Dosage: UNK
     Route: 048
  2. VORINOSTAT [Concomitant]
     Active Substance: VORINOSTAT
     Indication: NEOPLASM MALIGNANT
     Dosage: UNK
     Route: 048

REACTIONS (1)
  - Abdominal pain [Unknown]
